FAERS Safety Report 13922492 (Version 1)
Quarter: 2017Q3

REPORT INFORMATION
  Report Type: Spontaneous
  Country: US (occurrence: US)
  Receive Date: 20170830
  Receipt Date: 20170830
  Transmission Date: 20171127
  Serious: No
  Sender: FDA-Public Use
  Company Number: US-BEH-2017083216

PATIENT
  Age: 20 Year
  Sex: Female

DRUGS (1)
  1. HAEGARDA [Suspect]
     Active Substance: HUMAN C1-ESTERASE INHIBITOR
     Indication: PRODUCT USED FOR UNKNOWN INDICATION
     Dosage: 8.8 ML, UNK
     Route: 065

REACTIONS (3)
  - Injection site warmth [Unknown]
  - Injection site urticaria [Unknown]
  - Injection site erythema [Unknown]
